FAERS Safety Report 21215413 (Version 1)
Quarter: 2022Q3

REPORT INFORMATION
  Report Type: Spontaneous
  Country: US (occurrence: US)
  Receive Date: 20220816
  Receipt Date: 20220816
  Transmission Date: 20221027
  Serious: No
  Sender: FDA-Public Use
  Company Number: US-BRISTOL-MYERS SQUIBB COMPANY-2022-090048

PATIENT
  Age: 72 Year
  Sex: Male
  Weight: 97.976 kg

DRUGS (1)
  1. REVLIMID [Suspect]
     Active Substance: LENALIDOMIDE
     Indication: Plasma cell myeloma
     Dosage: D 1-21 Q 28 DAYS
     Route: 048
     Dates: start: 20220525

REACTIONS (2)
  - Respiratory tract infection [Unknown]
  - Bronchitis [Unknown]
